FAERS Safety Report 6309650-9 (Version None)
Quarter: 2009Q3

REPORT INFORMATION
  Report Type: 
  Country: None (occurrence: None)
  Receive Date: 20090814
  Receipt Date: 20090804
  Transmission Date: 20100115
  Serious: Yes (Other)
  Sender: FDA-Public Use
  Company Number: US-JNJFOC-20090702751

PATIENT
  Sex: Female
  Weight: 53.98 kg

DRUGS (6)
  1. REMICADE [Suspect]
     Indication: CROHN'S DISEASE
     Route: 042
  2. ASCAL [Concomitant]
     Route: 048
  3. ENDOCET [Concomitant]
  4. PREDNISONE [Concomitant]
  5. LORTAB [Concomitant]
  6. PHENERGAN [Concomitant]

REACTIONS (2)
  - DRUG EXPOSURE BEFORE PREGNANCY [None]
  - ECTOPIC PREGNANCY [None]
